FAERS Safety Report 6710225-8 (Version None)
Quarter: 2010Q2

REPORT INFORMATION
  Report Type: 
  Country: None (occurrence: None)
  Receive Date: 20100430
  Receipt Date: 20100414
  Transmission Date: 20101027
  Serious: Yes (Hospitalization)
  Sender: FDA-Public Use
  Company Number: US-001940

PATIENT
  Age: 60 Year
  Sex: Female

DRUGS (12)
  1. DESMOPRESSIN ACETATE [Suspect]
     Indication: BLADDER DISORDER
     Dosage: (0.2 MG ORAL), (0.1 MG ORAL)
     Route: 048
     Dates: start: 20090201, end: 20090401
  2. DESMOPRESSIN ACETATE [Suspect]
     Indication: BLADDER DISORDER
     Dosage: (0.2 MG ORAL), (0.1 MG ORAL)
     Route: 048
     Dates: start: 20090401
  3. INTERFERON BETA (44 ?G, 44 ?G) [Suspect]
     Indication: MULTIPLE SCLEROSIS
     Dosage: (44 ?G 3X/WEEK SUBCUTANEOUS), (44 ?G SUBCUTANEOUS)
     Route: 058
     Dates: start: 20040721, end: 20090401
  4. ENALAPRIL MALEATE [Suspect]
     Indication: HYPERTENSION
     Dates: end: 20090401
  5. NAPROXEN SODIUM [Suspect]
     Indication: TOOTHACHE
     Dates: start: 20090401
  6. IBUPROFEN [Suspect]
     Indication: TOOTHACHE
     Dates: start: 20090401
  7. OXYBUTYNIN [Concomitant]
  8. ACETAMINOPHEN [Concomitant]
  9. ACETYLSALICYLIC ACID [Concomitant]
  10. NEURONTIN [Concomitant]
  11. FOSAMAX [Concomitant]
  12. MACROBID [Concomitant]

REACTIONS (3)
  - BLOOD SODIUM DECREASED [None]
  - BRAIN OEDEMA [None]
  - LETHARGY [None]
